FAERS Safety Report 9590488 (Version 1)
Quarter: 2013Q4

REPORT INFORMATION
  Report Type: Spontaneous
  Country: US (occurrence: US)
  Receive Date: 20131003
  Receipt Date: 20131003
  Transmission Date: 20140711
  Serious: No
  Sender: FDA-Public Use
  Company Number: US-AMGEN-USASP2012077908

PATIENT
  Age: 69 Year
  Sex: Female
  Weight: 52.15 kg

DRUGS (13)
  1. ENBREL [Suspect]
     Indication: PRODUCT USED FOR UNKNOWN INDICATION
     Dosage: 25 MG, TWICE WEEKLY
     Route: 058
  2. ATIVAN [Concomitant]
     Dosage: 1 MG, UNK
  3. PROTONIX [Concomitant]
     Dosage: 20 MG, UNK
  4. AUGMENTIN                          /00756801/ [Concomitant]
     Dosage: 500 MG, UNK
  5. ZOLOFT [Concomitant]
     Dosage: 100 MG, UNK
  6. PREDNISONE [Concomitant]
     Dosage: 1 MG, UNK
  7. SYNTHROID [Concomitant]
     Dosage: 100 MUG, UNK
  8. FISH OIL [Concomitant]
     Dosage: UNK
  9. BENICAR [Concomitant]
     Dosage: 20 MG, UNK
  10. ZETIA [Concomitant]
     Dosage: 10 MG, UNK
  11. CALCIUM D                          /00944201/ [Concomitant]
     Dosage: UNK
  12. TYLENOL 8 HOUR [Concomitant]
     Dosage: 650 MG, UNK
  13. MULTI-VIT [Concomitant]

REACTIONS (1)
  - Cystitis [Unknown]
